FAERS Safety Report 16636880 (Version 1)
Quarter: 2019Q3

REPORT INFORMATION
  Report Type: Spontaneous
  Country: US (occurrence: US)
  Receive Date: 20190726
  Receipt Date: 20190726
  Transmission Date: 20191004
  Serious: Yes (Other)
  Sender: FDA-Public Use
  Company Number: US-JNJFOC-20190717628

PATIENT
  Sex: Male
  Weight: 122.58 kg

DRUGS (2)
  1. TOPIRAMATE. [Suspect]
     Active Substance: TOPIRAMATE
     Indication: EPILEPSY
     Route: 048
     Dates: start: 2006
  2. DILANTIN [Suspect]
     Active Substance: PHENYTOIN
     Indication: EPILEPSY
     Dosage: 400 MG A DAY BY MOUTH, BROKEN DOWN AS 100 MG AT 8 AM AND 3:30 PM AND 200 MG AT 11 PM
     Dates: start: 1998

REACTIONS (1)
  - Seizure [Unknown]
